FAERS Safety Report 25134504 (Version 3)
Quarter: 2025Q3

REPORT INFORMATION
  Report Type: Report from Study
  Country: GB (occurrence: GB)
  Receive Date: 20250328
  Receipt Date: 20250902
  Transmission Date: 20251021
  Serious: Yes (Hospitalization)
  Sender: EISAI
  Company Number: GB-Eisai-EC-2025-186413

PATIENT
  Sex: Female
  Weight: 61.7 kg

DRUGS (9)
  1. LENVATINIB [Suspect]
     Active Substance: LENVATINIB
     Indication: Neuroendocrine tumour
     Dosage: STARTING DOSE UNKNOWN; PRIOR TO THE EVENT DOSE REDUCED TO 14 MG ONCE A DAY
     Route: 048
  2. LENVATINIB [Suspect]
     Active Substance: LENVATINIB
     Dosage: OVERDOSE (4 EXTRA DAYS DOSE)
     Route: 048
  3. LENVATINIB [Suspect]
     Active Substance: LENVATINIB
     Dosage: STARTING DOSE UNKNOWN; PRIOR TO THE EVENT DOSE REDUCED TO 14 MG ONCE A DAY
     Route: 048
     Dates: end: 20250314
  4. PEMBROLIZUMAB [Suspect]
     Active Substance: PEMBROLIZUMAB
     Indication: Neuroendocrine tumour
  5. PREDNISOLONE [Concomitant]
     Active Substance: PREDNISOLONE
  6. NITROFURANTOIN [Concomitant]
     Active Substance: NITROFURANTOIN
     Dates: start: 20250108, end: 20250111
  7. MORPHINE SULFATE [Concomitant]
     Active Substance: MORPHINE SULFATE
  8. OMEPRAZOLE [Concomitant]
     Active Substance: OMEPRAZOLE
  9. CEFACLOR [Concomitant]
     Active Substance: CEFACLOR
     Dates: start: 20250130, end: 20250206

REACTIONS (3)
  - Vomiting [Not Recovered/Not Resolved]
  - Appendicitis perforated [Not Recovered/Not Resolved]
  - Overdose [Unknown]

NARRATIVE: CASE EVENT DATE: 20250316
